FAERS Safety Report 11174776 (Version 1)
Quarter: 2015Q2

REPORT INFORMATION
  Report Type: Spontaneous
  Country: US (occurrence: None)
  Receive Date: 20150608
  Receipt Date: 20150608
  Transmission Date: 20150821
  Serious: No
  Sender: FDA-Public Use
  Company Number: None

PATIENT
  Age: 26 Year
  Sex: Male
  Weight: 68.04 kg

DRUGS (3)
  1. ADDERALL, GENERIC [Concomitant]
  2. AMPHETAMINE SALTS 10 MG AUROBINDO [Suspect]
     Active Substance: AMPHETAMINE ASPARTATE\AMPHETAMINE SULFATE\DEXTROAMPHETAMINE SACCHARATE\DEXTROAMPHETAMINE SULFATE
     Indication: ATTENTION DEFICIT/HYPERACTIVITY DISORDER
     Route: 048
  3. VITAMIN [Concomitant]
     Active Substance: VITAMINS

REACTIONS (9)
  - Nausea [None]
  - Product substitution issue [None]
  - Product quality issue [None]
  - Muscle spasms [None]
  - Personality change [None]
  - Dyspepsia [None]
  - Fatigue [None]
  - Irritability [None]
  - Vertigo [None]

NARRATIVE: CASE EVENT DATE: 20150607
